FAERS Safety Report 9998331 (Version 1)
Quarter: 2014Q1

REPORT INFORMATION
  Report Type: Spontaneous
  Country: AU (occurrence: AU)
  Receive Date: 20140312
  Receipt Date: 20140312
  Transmission Date: 20141002
  Serious: Yes (Death, Hospitalization)
  Sender: FDA-Public Use
  Company Number: PHHY2014AU026394

PATIENT
  Age: 66 Year
  Sex: Female

DRUGS (4)
  1. 5-FLUOROURACIL [Suspect]
     Indication: RECTAL ADENOCARCINOMA
     Dosage: 450 MG/M2, QW (650MG)
  2. IRINOTECAN [Suspect]
     Indication: CHEMOTHERAPY
  3. BEVACIZUMAB [Suspect]
     Indication: CHEMOTHERAPY
  4. LEUCOVORIN [Concomitant]
     Indication: RECTAL ADENOCARCINOMA
     Dosage: 50 MG, UNK

REACTIONS (20)
  - Death [Fatal]
  - Stress cardiomyopathy [Recovered/Resolved]
  - Malaise [Unknown]
  - Sinus tachycardia [Recovered/Resolved]
  - Orthostatic hypotension [Recovered/Resolved]
  - Hypomagnesaemia [Unknown]
  - Systolic dysfunction [Recovered/Resolved]
  - Cardiogenic shock [Recovered/Resolved]
  - Dehydration [Recovered/Resolved]
  - Intracardiac thrombus [Recovered/Resolved]
  - Ejection fraction decreased [Recovered/Resolved]
  - Ventricular hypokinesia [Recovered/Resolved]
  - Cerebellar infarction [Recovered/Resolved]
  - Electrolyte imbalance [Recovered/Resolved]
  - Hypophagia [Unknown]
  - Vertigo [Unknown]
  - Decreased appetite [Unknown]
  - Fatigue [Unknown]
  - Nausea [Unknown]
  - Vomiting [Unknown]
